FAERS Safety Report 7593513-5 (Version None)
Quarter: 2011Q3

REPORT INFORMATION
  Report Type: 
  Country: None (occurrence: None)
  Receive Date: 20110706
  Receipt Date: 20110624
  Transmission Date: 20111222
  Serious: Yes (Other)
  Sender: FDA-Public Use
  Company Number: GR-ROCHE-779699

PATIENT
  Age: 42 Year
  Sex: Male

DRUGS (2)
  1. RIBAVIRIN [Suspect]
     Dosage: FOR 48 WEEKS
     Route: 065
  2. PEGASYS [Suspect]
     Dosage: FOR 48 WEEKS
     Route: 065

REACTIONS (1)
  - DEAFNESS NEUROSENSORY [None]
